FAERS Safety Report 20668816 (Version 3)
Quarter: 2023Q4

REPORT INFORMATION
  Report Type: Spontaneous
  Country: US (occurrence: US)
  Receive Date: 20220404
  Receipt Date: 20231020
  Transmission Date: 20240110
  Serious: No
  Sender: FDA-Public Use
  Company Number: US-PFIZER INC-202100941121

PATIENT
  Age: 81 Year
  Sex: Female
  Weight: 188 kg

DRUGS (1)
  1. IBRANCE [Suspect]
     Active Substance: PALBOCICLIB
     Indication: Breast cancer metastatic
     Dosage: 75 MG, CYCLIC (DAILY, 21 DAYS ON, 7 DAYS OFF)
     Dates: start: 202003, end: 202308

REACTIONS (1)
  - Confusional state [Unknown]
